FAERS Safety Report 10287675 (Version 2)
Quarter: 2014Q3

REPORT INFORMATION
  Report Type: Spontaneous
  Country: US (occurrence: None)
  Receive Date: 20140707
  Receipt Date: 20140714
  Transmission Date: 20150326
  Serious: Yes (Hospitalization, Other)
  Sender: FDA-Public Use
  Company Number: 2014AP003488

PATIENT
  Age: 15 Year
  Sex: Female

DRUGS (7)
  1. TRAZODONE [Concomitant]
     Active Substance: TRAZODONE HYDROCHLORIDE
  2. LORAZEPAM (LORAZEPAM) [Concomitant]
     Active Substance: LORAZEPAM
  3. CHLORPROMAZINE (CHLORPROMAZINE) [Concomitant]
     Active Substance: CHLORPROMAZINE
  4. GUANFACINE. [Suspect]
     Active Substance: GUANFACINE
     Indication: PRODUCT USED FOR UNKNOWN INDICATION
  5. OXCARBAZEPINE (OXCARBAZEPINE) [Concomitant]
     Active Substance: OXCARBAZEPINE
  6. LITHIUM [Concomitant]
     Active Substance: LITHIUM CARBONATE
  7. LAMOTRIGINE. [Suspect]
     Active Substance: LAMOTRIGINE
     Indication: PRODUCT USED FOR UNKNOWN INDICATION

REACTIONS (1)
  - Aggression [None]
